FAERS Safety Report 4631218-0 (Version None)
Quarter: 2005Q2

REPORT INFORMATION
  Report Type: 
  Country: None (occurrence: None)
  Receive Date: 20050406
  Receipt Date: 20050223
  Transmission Date: 20051028
  Serious: Yes (Other)
  Sender: FDA-Public Use
  Company Number: 10644

PATIENT
  Sex: Female

DRUGS (2)
  1. PACLITAXEL [Suspect]
     Indication: OVARIAN CANCER
     Dosage: 80 MG/M2 WEEKLY IV
     Route: 042
  2. DEXAMETHASONE [Concomitant]

REACTIONS (2)
  - DRUG TOXICITY [None]
  - NAIL BED TENDERNESS [None]
